FAERS Safety Report 23595108 (Version 9)
Quarter: 2025Q3

REPORT INFORMATION
  Report Type: Report from Study
  Country: CA (occurrence: CA)
  Receive Date: 20240305
  Receipt Date: 20250930
  Transmission Date: 20251021
  Serious: Yes (Hospitalization, Other)
  Sender: TAKEDA
  Company Number: CA-TAKEDA-2023TUS110785

PATIENT
  Age: 33 Year
  Sex: Female
  Weight: 72.7 kg

DRUGS (32)
  1. VEDOLIZUMAB [Suspect]
     Active Substance: VEDOLIZUMAB
     Indication: Colitis ulcerative
  2. VEDOLIZUMAB [Suspect]
     Active Substance: VEDOLIZUMAB
  3. VEDOLIZUMAB [Suspect]
     Active Substance: VEDOLIZUMAB
  4. VEDOLIZUMAB [Suspect]
     Active Substance: VEDOLIZUMAB
     Dosage: 300 MILLIGRAM, Q4WEEKS
     Dates: start: 20250922
  5. PREDNISONE [Concomitant]
     Active Substance: PREDNISONE
     Dosage: 60 MILLIGRAM, QD
  6. ADALIMUMAB [Concomitant]
     Active Substance: ADALIMUMAB
  7. IMURAN [Concomitant]
     Active Substance: AZATHIOPRINE
     Dosage: 150 MILLIGRAM, QD
  8. CALCIUM CARBONATE [Concomitant]
     Active Substance: CALCIUM CARBONATE
     Dosage: 1250 MILLIGRAM, BID
  9. CELEXA [Concomitant]
     Active Substance: CITALOPRAM HYDROBROMIDE
     Dosage: 10 MILLIGRAM, QD
  10. VITAMIN B12 [Concomitant]
     Active Substance: CYANOCOBALAMIN
     Dosage: 1000 MICROGRAM, QD
  11. MARVELON [Concomitant]
     Active Substance: DESOGESTREL\ETHINYL ESTRADIOL
  12. IRON [Concomitant]
     Active Substance: IRON
     Dosage: 150 MILLIGRAM, QD
  13. IRON [Concomitant]
     Active Substance: IRON
     Dosage: 300 MILLIGRAM, QD
  14. VITAMIN D3 [Concomitant]
     Active Substance: CHOLECALCIFEROL
     Dosage: UNK UNK, QD
  15. FISH OIL [Concomitant]
     Active Substance: FISH OIL
  16. DOCONEXENT [Concomitant]
     Active Substance: DOCONEXENT
  17. DELTASONE [Concomitant]
     Active Substance: PREDNISONE
     Dosage: 40 MILLIGRAM, QD
  18. DELTASONE [Concomitant]
     Active Substance: PREDNISONE
     Dosage: 35 MILLIGRAM, QD
  19. DELTASONE [Concomitant]
     Active Substance: PREDNISONE
     Dosage: 25 MILLIGRAM, QD
  20. DELTASONE [Concomitant]
     Active Substance: PREDNISONE
     Dosage: 20 MILLIGRAM, QD
  21. DELTASONE [Concomitant]
     Active Substance: PREDNISONE
     Dosage: 15 MILLIGRAM, QD
  22. DELTASONE [Concomitant]
     Active Substance: PREDNISONE
     Dosage: 10 MILLIGRAM, QD
  23. DELTASONE [Concomitant]
     Active Substance: PREDNISONE
     Dosage: 5 MILLIGRAM, QD
  24. SODIUM PHOSPHATE [Concomitant]
     Active Substance: SODIUM PHOSPHATE
  25. SEPTRA DS [Concomitant]
     Active Substance: SULFAMETHOXAZOLE\TRIMETHOPRIM
     Dosage: UNK UNK, QOD
  26. PROGRAF [Concomitant]
     Active Substance: TACROLIMUS
     Dosage: 3 MILLIGRAM, BID
  27. TACROLIMUS [Concomitant]
     Active Substance: TACROLIMUS
     Dosage: 3 MILLIGRAM, BID
  28. CITALOPRAM [Concomitant]
     Active Substance: CITALOPRAM
     Dosage: 20 MILLIGRAM, QD
  29. GRAVOL [Concomitant]
     Active Substance: DIMENHYDRINATE
     Indication: Nausea
  30. GRAVOL [Concomitant]
     Active Substance: DIMENHYDRINATE
     Indication: Vomiting
  31. ZOPICLONE [Concomitant]
     Active Substance: ZOPICLONE
     Dosage: 5 MILLIGRAM, QD
  32. TYLENOL [Concomitant]
     Active Substance: ACETAMINOPHEN
     Indication: Pain

REACTIONS (18)
  - Colitis ulcerative [Recovering/Resolving]
  - Appendicitis perforated [Recovered/Resolved]
  - Crohn^s disease [Unknown]
  - Large intestinal ulcer [Unknown]
  - Clostridium difficile infection [Recovering/Resolving]
  - Anal abscess [Recovering/Resolving]
  - Drug level decreased [Unknown]
  - Oesophagitis [Unknown]
  - Loss of therapeutic response [Unknown]
  - Depressed mood [Unknown]
  - Hunger [Unknown]
  - Haemoglobin decreased [Unknown]
  - Weight decreased [Unknown]
  - Off label use [Unknown]
  - Alanine aminotransferase increased [Unknown]
  - Asthenia [Unknown]
  - Upper respiratory tract infection [Recovered/Resolved]
  - Influenza [Unknown]

NARRATIVE: CASE EVENT DATE: 20240207
